FAERS Safety Report 9832640 (Version 2)
Quarter: 2014Q1

REPORT INFORMATION
  Report Type: Spontaneous
  Country: GB (occurrence: GB)
  Receive Date: 20140121
  Receipt Date: 20140121
  Transmission Date: 20141002
  Serious: Yes (Life-Threatening, Hospitalization)
  Sender: FDA-Public Use
  Company Number: GB-TEVA-335182ISR

PATIENT
  Age: 42 Year
  Sex: Female

DRUGS (12)
  1. VENLAFAXINE [Suspect]
     Dosage: 150 MILLIGRAM DAILY;
     Route: 048
  2. GABAPENTIN [Suspect]
     Dosage: 2400 MILLIGRAM DAILY;
     Route: 048
  3. OMEPRAZOLE [Suspect]
     Dosage: 40 MILLIGRAM DAILY;
     Route: 048
  4. SULFASALAZINE [Suspect]
     Route: 048
  5. METHOTREXATE [Suspect]
     Route: 048
  6. HYDROXYCHLOROQUINE [Suspect]
     Indication: RHEUMATOID ARTHRITIS
     Dosage: 400 MILLIGRAM DAILY;
     Route: 048
  7. BENZYDAMINE [Concomitant]
  8. NYSTATIN [Concomitant]
  9. FLUCLOXACILLIN [Concomitant]
  10. METRONIDAZOLE [Concomitant]
  11. MICONAZOLE [Concomitant]
  12. SCHERIPROCT [Concomitant]

REACTIONS (7)
  - Thrombocytopenia [Recovering/Resolving]
  - Haematemesis [Recovered/Resolved]
  - Full blood count abnormal [Recovered/Resolved]
  - Abdominal pain [Recovering/Resolving]
  - Diarrhoea [Recovering/Resolving]
  - Contusion [Recovering/Resolving]
  - Blood disorder [Unknown]
